FAERS Safety Report 5154772-1 (Version None)
Quarter: 2006Q4

REPORT INFORMATION
  Report Type: 
  Country: None (occurrence: None)
  Receive Date: 20061115
  Receipt Date: 20061115
  Transmission Date: 20070319
  Serious: No
  Sender: FDA-Public Use
  Company Number: None

PATIENT
  Age: 6 Year
  Sex: Female
  Weight: 19.5047 kg

DRUGS (1)
  1. TAMIFLU [Suspect]
     Indication: INFLUENZA SEROLOGY POSITIVE
     Dosage: 45MG  BID  PO
     Route: 048
     Dates: start: 20041211, end: 20041216

REACTIONS (4)
  - DISORIENTATION [None]
  - ENURESIS [None]
  - HALLUCINATION [None]
  - SLEEP DISORDER [None]
